FAERS Safety Report 21760480 (Version 2)
Quarter: 2022Q4

REPORT INFORMATION
  Report Type: Spontaneous
  Country: BE (occurrence: BE)
  Receive Date: 20221221
  Receipt Date: 20221226
  Transmission Date: 20230113
  Serious: Yes (Hospitalization)
  Sender: FDA-Public Use
  Company Number: None

PATIENT
  Age: 69 Year
  Sex: Male

DRUGS (11)
  1. METHYLPREDNISOLONE [Suspect]
     Active Substance: METHYLPREDNISOLONE
     Dosage: 16 MG
     Route: 048
  2. CLOPIDOGREL BISULFATE [Suspect]
     Active Substance: CLOPIDOGREL BISULFATE
     Dosage: 75 MG
     Route: 048
  3. ASPIRIN [Suspect]
     Active Substance: ASPIRIN
     Dosage: 80 MG
     Route: 048
  4. ISONIAZID [Suspect]
     Active Substance: ISONIAZID
     Dosage: 300 MG
     Route: 048
  5. RIFAMPIN [Suspect]
     Active Substance: RIFAMPIN
     Dosage: 150 MG
     Route: 048
  6. PYRIDOXINE [Suspect]
     Active Substance: PYRIDOXINE
     Dosage: 250 MG
     Route: 048
  7. BISOPROLOL FUMARATE [Suspect]
     Active Substance: BISOPROLOL FUMARATE
     Dosage: 5 MG,
  8. MOLSIDOMINE [Suspect]
     Active Substance: MOLSIDOMINE
     Dosage: 16 MG,
     Route: 048
  9. INDACATEROL MALEATE [Suspect]
     Active Substance: INDACATEROL MALEATE
     Dosage: UNK
     Route: 055
  10. PYRAZINAMIDE [Suspect]
     Active Substance: PYRAZINAMIDE
     Dosage: UNK
     Route: 048
  11. MICONAZOLE [Suspect]
     Active Substance: MICONAZOLE
     Dosage: UNK
     Route: 048

REACTIONS (2)
  - Therapeutic agent-diagnostic test interaction [Unknown]
  - Aspergillus test [Unknown]

NARRATIVE: CASE EVENT DATE: 20210914
